FAERS Safety Report 6616198-0 (Version None)
Quarter: 2010Q1

REPORT INFORMATION
  Report Type: 
  Country: None (occurrence: None)
  Receive Date: 20100305
  Receipt Date: 20100226
  Transmission Date: 20100710
  Serious: Yes (Hospitalization)
  Sender: FDA-Public Use
  Company Number: PHHO2010NL02179

PATIENT
  Sex: Male
  Weight: 87 kg

DRUGS (1)
  1. AFINITOR [Suspect]
     Indication: METASTATIC RENAL CELL CARCINOMA
     Dosage: 10.0 MG
     Route: 048
     Dates: start: 20100125

REACTIONS (3)
  - DYSPNOEA [None]
  - METASTASES TO LUNG [None]
  - PNEUMONITIS [None]
